FAERS Safety Report 7716533 (Version 4)
Quarter: 2020Q3

REPORT INFORMATION
  Report Type: Report from Study
  Country: JP (occurrence: JP)
  Receive Date: 20101217
  Receipt Date: 20200730
  Transmission Date: 20201103
  Serious: Yes (Death, Other)
  Sender: FDA-Public Use
  Company Number: JP-CELGENEUS-087-21880-10120485

PATIENT
  Age: 76 Year
  Sex: Male
  Weight: 52 kg

DRUGS (8)
  1. AMOBAN [Concomitant]
     Active Substance: ZOPICLONE
     Indication: INSOMNIA
     Dosage: 75 MILLIGRAM
     Route: 048
     Dates: start: 20100930, end: 20101018
  2. PLATELETS [Concomitant]
     Active Substance: HUMAN PLATELET, ALLOGENIC
     Indication: PRODUCT USED FOR UNKNOWN INDICATION
     Route: 041
     Dates: start: 2010, end: 2010
  3. PARIET [Concomitant]
     Active Substance: RABEPRAZOLE SODIUM
     Indication: PROPHYLAXIS
     Dosage: 990 MILLIGRAM
     Route: 048
     Dates: start: 20100930, end: 20101018
  4. REVLIMID [Suspect]
     Active Substance: LENALIDOMIDE
     Indication: PLASMA CELL MYELOMA
     Dosage: 25 MILLIGRAM
     Route: 048
     Dates: start: 20100930, end: 20101008
  5. MAGMITT [Concomitant]
     Active Substance: MAGNESIUM OXIDE
     Indication: PROPHYLAXIS
     Dosage: 990 MILLIGRAM
     Route: 048
     Dates: start: 20100930, end: 20101018
  6. ALDACTONE [Concomitant]
     Active Substance: SPIRONOLACTONE
     Indication: HYPERTENSION
     Dosage: 25 MILLIGRAM
     Route: 048
     Dates: start: 20100930, end: 20101018
  7. DEXART [Concomitant]
     Active Substance: DEXAMETHASONE SODIUM PHOSPHATE
     Indication: PLASMA CELL MYELOMA
     Dosage: 20 MILLIGRAM
     Route: 041
     Dates: start: 20100930, end: 20101018
  8. SHOKENCHUTO [Concomitant]
     Active Substance: HERBALS
     Indication: PROPHYLAXIS
     Dosage: 75 GRAM
     Route: 048
     Dates: start: 20100930, end: 20101018

REACTIONS (3)
  - Haemorrhage [Recovered/Resolved]
  - Plasma cell myeloma [Fatal]
  - Neutropenia [Unknown]

NARRATIVE: CASE EVENT DATE: 20101008
